FAERS Safety Report 7333588-1 (Version None)
Quarter: 2011Q1

REPORT INFORMATION
  Report Type: 
  Country: None (occurrence: None)
  Receive Date: 20110304
  Receipt Date: 20110221
  Transmission Date: 20110831
  Serious: Yes (Life-Threatening, Hospitalization)
  Sender: FDA-Public Use
  Company Number: DE-GENENTECH-314512

PATIENT
  Age: 70 Year
  Sex: Male
  Weight: 83 kg

DRUGS (1)
  1. RITUXIMAB [Suspect]
     Indication: CHRONIC LYMPHOCYTIC LEUKAEMIA
     Dosage: UNK
     Route: 042
     Dates: start: 20110221, end: 20110221

REACTIONS (2)
  - INFLUENZA LIKE ILLNESS [None]
  - CHILLS [None]
